FAERS Safety Report 13440584 (Version 1)
Quarter: 2017Q2

REPORT INFORMATION
  Report Type: Spontaneous
  Country: US (occurrence: US)
  Receive Date: 20170413
  Receipt Date: 20170413
  Transmission Date: 20170830
  Serious: Yes (Hospitalization)
  Sender: FDA-Public Use
  Company Number: US-ASTELLAS-2016US051203

PATIENT
  Sex: Male

DRUGS (1)
  1. PROGRAF [Suspect]
     Active Substance: TACROLIMUS\TACROLIMUS ANHYDROUS
     Indication: STEM CELL TRANSPLANT
     Dosage: 4 MG, TWICE DAILY (EVERY MORNING AND EVERY EVENING)
     Route: 048
     Dates: start: 20160404

REACTIONS (2)
  - Blood bilirubin increased [Unknown]
  - Off label use [Unknown]
